FAERS Safety Report 8671279 (Version 2)
Quarter: 2012Q4

REPORT INFORMATION
  Report Type: 
  Country: CA (occurrence: CA)
  Receive Date: 20120718
  Receipt Date: 20121226
  Transmission Date: 20130627
  Serious: Yes (Other)
  Sender: FDA-Public Use
  Company Number: PHHY2012CA060594

PATIENT
  Age: 58 Year
  Sex: Male

DRUGS (1)
  1. CLOZARIL [Suspect]
     Dosage: UNK UKN, UNK
     Dates: start: 20120626, end: 20121213

REACTIONS (8)
  - Ischaemia [Unknown]
  - Arthralgia [Unknown]
  - Back pain [Unknown]
  - Electrocardiogram abnormal [Unknown]
  - Agranulocytosis [Unknown]
  - White blood cell count decreased [Unknown]
  - Urinary sediment abnormal [Unknown]
  - Pyrexia [Unknown]
